FAERS Safety Report 10242506 (Version 2)
Quarter: 2014Q2

REPORT INFORMATION
  Report Type: Spontaneous
  Country: JP (occurrence: JP)
  Receive Date: 20140617
  Receipt Date: 20140630
  Transmission Date: 20141212
  Serious: No
  Sender: FDA-Public Use
  Company Number: JP-ELI_LILLY_AND_COMPANY-JP201406002513

PATIENT
  Age: 50 Year
  Sex: Male

DRUGS (5)
  1. CYMBALTA [Suspect]
     Indication: DEPRESSION
     Dosage: 40 MG, QD
     Route: 048
  2. LIPITOR [Suspect]
     Indication: DYSLIPIDAEMIA
     Dosage: UNK
     Route: 048
     Dates: start: 20140507, end: 20140528
  3. RIVOTRIL [Concomitant]
     Route: 048
  4. AMOXAN [Concomitant]
  5. DESYREL [Concomitant]

REACTIONS (1)
  - Gamma-glutamyltransferase increased [Recovering/Resolving]
